FAERS Safety Report 16282203 (Version 1)
Quarter: 2019Q2

REPORT INFORMATION
  Report Type: Spontaneous
  Country: US (occurrence: US)
  Receive Date: 20190507
  Receipt Date: 20190507
  Transmission Date: 20190711
  Serious: Yes (Other)
  Sender: FDA-Public Use
  Company Number: US-PFIZER INC-2019189877

PATIENT
  Age: 68 Year
  Sex: Male
  Weight: 104.3 kg

DRUGS (1)
  1. RAPAMUNE [Suspect]
     Active Substance: SIROLIMUS
     Indication: HEART TRANSPLANT
     Dosage: 3 DF, 1X/DAY
     Route: 048
     Dates: start: 2009

REACTIONS (3)
  - Product use in unapproved indication [Unknown]
  - Product use issue [Unknown]
  - Cataract [Unknown]

NARRATIVE: CASE EVENT DATE: 2009
